FAERS Safety Report 22079629 (Version 3)
Quarter: 2023Q1

REPORT INFORMATION
  Report Type: Spontaneous
  Country: US (occurrence: US)
  Receive Date: 20230309
  Receipt Date: 20230328
  Transmission Date: 20230418
  Serious: Yes (Life-Threatening, Hospitalization)
  Sender: FDA-Public Use
  Company Number: US-SK LIFE SCIENCE, INC.-SKPVG-2023-000251

PATIENT

DRUGS (6)
  1. XCOPRI [Suspect]
     Active Substance: CENOBAMATE
     Indication: Temporal lobe epilepsy
     Dosage: 12.5 MILLIGRAM, QD, FOR 2 WEEKS
     Route: 065
     Dates: start: 20221221
  2. XCOPRI [Suspect]
     Active Substance: CENOBAMATE
     Indication: Epilepsy
     Dosage: 25 MILLIGRAM, QD, FOR 2 WEEKS
     Route: 065
  3. XCOPRI [Suspect]
     Active Substance: CENOBAMATE
     Dosage: 50 MILLIGRAM, QD, FOR 2 WEEKS
     Route: 065
  4. XCOPRI [Suspect]
     Active Substance: CENOBAMATE
     Dosage: 100 MILLIGRAM, DAILY
     Route: 065
     Dates: start: 202302
  5. LACOSAMIDE [Concomitant]
     Active Substance: LACOSAMIDE
     Indication: Product used for unknown indication
     Dosage: UNK
     Route: 065
  6. DIAZEPAM [Concomitant]
     Active Substance: DIAZEPAM
     Indication: Product used for unknown indication
     Dosage: UNK, PRN
     Route: 065

REACTIONS (4)
  - Hepatic failure [Recovered/Resolved]
  - Lethargy [Unknown]
  - Fatigue [Unknown]
  - Pyrexia [Unknown]

NARRATIVE: CASE EVENT DATE: 20230201
